FAERS Safety Report 6245050-8 (Version None)
Quarter: 2009Q2

REPORT INFORMATION
  Report Type: 
  Country: None (occurrence: None)
  Receive Date: 20090625
  Receipt Date: 20090615
  Transmission Date: 20091009
  Serious: No
  Sender: FDA-Public Use
  Company Number: US-ELI_LILLY_AND_COMPANY-US200609001174

PATIENT
  Sex: Male
  Weight: 68.027 kg

DRUGS (5)
  1. ZYPREXA [Suspect]
     Indication: BIPOLAR DISORDER
     Dosage: 5 MG, UNK
     Dates: start: 19960101, end: 19990101
  2. ZYPREXA [Suspect]
     Dosage: 10 MG, UNK
     Dates: start: 20011116, end: 20050307
  3. ZYPREXA [Suspect]
     Dosage: 7.5 MG, EACH EVENING
  4. LITHIUM [Concomitant]
     Dates: start: 19951228
  5. TRAZODONE HCL [Concomitant]

REACTIONS (7)
  - BLOOD CHOLESTEROL ABNORMAL [None]
  - BLOOD GLUCOSE INCREASED [None]
  - DIABETES MELLITUS [None]
  - EOSINOPHIL COUNT INCREASED [None]
  - HYPOGLYCAEMIA [None]
  - LYMPHOCYTE COUNT INCREASED [None]
  - VISUAL IMPAIRMENT [None]
